FAERS Safety Report 5940046-5 (Version None)
Quarter: 2008Q4

REPORT INFORMATION
  Report Type: 
  Country: None (occurrence: None)
  Receive Date: 20081104
  Receipt Date: 20081027
  Transmission Date: 20090506
  Serious: Yes (Disabling)
  Sender: FDA-Public Use
  Company Number: PHHY2008FR16810

PATIENT
  Sex: Male

DRUGS (2)
  1. ZOMETA [Suspect]
     Indication: METASTASES TO BONE
     Dosage: 4 MG, QMO
     Route: 042
     Dates: start: 20080131, end: 20080527
  2. ROACCUTANE [Suspect]
     Indication: THYMOMA MALIGNANT
     Dosage: 20 MG/DAY
     Route: 065
     Dates: start: 20070607, end: 20080523

REACTIONS (5)
  - COMPUTERISED TOMOGRAM ABNORMAL [None]
  - GRANULOMA [None]
  - PURULENT DISCHARGE [None]
  - RHINITIS [None]
  - SINUSITIS [None]
